FAERS Safety Report 8813066 (Version 2)
Quarter: 2013Q1

REPORT INFORMATION
  Report Type: Spontaneous
  Country: CA (occurrence: CA)
  Receive Date: 20120927
  Receipt Date: 20130104
  Transmission Date: 20140127
  Serious: Yes (Other)
  Sender: FDA-Public Use
  Company Number: CA-PURDUE-CAN-2012-0003356

PATIENT
  Sex: Female

DRUGS (2)
  1. HYDROMORPH CONTIN [Suspect]
     Indication: PAIN
     Dosage: UNK MG, UNK
  2. OXYNEO [Suspect]
     Indication: PAIN
     Dosage: 20 MG, UNK
     Route: 048

REACTIONS (5)
  - Drug ineffective [Not Recovered/Not Resolved]
  - Systemic lupus erythematosus [Unknown]
  - SLE arthritis [Unknown]
  - Conjunctivitis [Unknown]
  - Abdominal pain [Unknown]
